FAERS Safety Report 6981795-X (Version None)
Quarter: 2010Q3

REPORT INFORMATION
  Report Type: 
  Country: None (occurrence: None)
  Receive Date: 20100914
  Receipt Date: 20090923
  Transmission Date: 20110219
  Serious: No
  Sender: FDA-Public Use
  Company Number: US-PFIZER INC-2009273758

PATIENT
  Sex: Male
  Weight: 75.3 kg

DRUGS (11)
  1. LYRICA [Suspect]
     Indication: MUSCLE SPASMS
     Dosage: 50 MG, 2X/DAY
     Dates: start: 20090901
  2. KETOROLAC [Concomitant]
     Dosage: UNK
  3. ATIVAN [Concomitant]
     Indication: ANXIETY
     Dosage: UNK
  4. CELEBREX [Concomitant]
     Indication: SPONDYLOLISTHESIS
     Dosage: UNK
  5. ELMIRON [Concomitant]
     Dosage: UNK
  6. LEVOTHYROXINE [Concomitant]
     Dosage: UNK
  7. NASONEX [Concomitant]
     Dosage: UNK
  8. NITROSTAT [Concomitant]
     Dosage: UNK
  9. OMEPRAZOLE [Concomitant]
     Dosage: UNK
  10. OLOPATADINE [Concomitant]
     Dosage: UNK
  11. ZETIA [Concomitant]
     Dosage: UNK

REACTIONS (1)
  - BALANCE DISORDER [None]
